FAERS Safety Report 8259079-1 (Version None)
Quarter: 2012Q2

REPORT INFORMATION
  Report Type: 
  Country: None (occurrence: None)
  Receive Date: 20120404
  Receipt Date: 20120331
  Transmission Date: 20120825
  Serious: Yes (Other)
  Sender: FDA-Public Use
  Company Number: CN-PFIZER INC-2012082140

PATIENT

DRUGS (6)
  1. BISOPROLOL [Concomitant]
  2. PLAVIX [Concomitant]
  3. OMEPRAZOLE [Concomitant]
  4. ACETYLSALICYLIC ACID [Concomitant]
  5. LIPITOR [Suspect]
     Indication: ACUTE MYOCARDIAL INFARCTION
     Dosage: 20 MG, UNK
     Route: 048
  6. PLENDIL [Concomitant]

REACTIONS (1)
  - LIVER INJURY [None]
